FAERS Safety Report 4469293-9 (Version None)
Quarter: 2004Q4

REPORT INFORMATION
  Report Type: 
  Country: None (occurrence: None)
  Receive Date: 20041008
  Receipt Date: 20030922
  Transmission Date: 20050328
  Serious: No
  Sender: FDA-Public Use
  Company Number: US-BRISTOL-MYERS SQUIBB COMPANY-12391090

PATIENT
  Age: 89 Year
  Sex: Female
  Weight: 59 kg

DRUGS (5)
  1. AVAPRO [Suspect]
     Indication: HYPERTENSION
     Route: 048
     Dates: start: 20030822, end: 20030822
  2. TOPROL-XL [Concomitant]
  3. BUMEX [Concomitant]
  4. CALCIUM [Concomitant]
  5. MULTI-VITAMIN [Concomitant]

REACTIONS (2)
  - DIZZINESS [None]
  - NAUSEA [None]
